FAERS Safety Report 8670415 (Version 2)
Quarter: 2015Q2

REPORT INFORMATION
  Report Type: Report from Study
  Country: US (occurrence: US)
  Receive Date: 20120718
  Receipt Date: 20150629
  Transmission Date: 20150821
  Serious: Yes (Death)
  Sender: FDA-Public Use
  Company Number: US-ROCHE-1087502

PATIENT
  Sex: Male

DRUGS (14)
  1. LOPRESSOR [Concomitant]
     Active Substance: METOPROLOL TARTRATE
     Route: 065
  2. COMBIVENT [Concomitant]
     Active Substance: ALBUTEROL SULFATE\IPRATROPIUM BROMIDE
     Route: 065
  3. LUCENTIS [Suspect]
     Active Substance: RANIBIZUMAB
     Indication: RETINAL VEIN OCCLUSION
     Route: 050
  4. CLARITIN [Concomitant]
     Active Substance: LORATADINE
  5. MICRO K EXTENCAPS [Concomitant]
     Route: 065
  6. LASIX [Concomitant]
     Active Substance: FUROSEMIDE
     Route: 065
  7. LISINOPRIL. [Concomitant]
     Active Substance: LISINOPRIL
     Route: 065
  8. PROPARACAINE [Concomitant]
     Active Substance: PROPARACAINE
  9. FLUOROCORT [Concomitant]
     Route: 065
  10. SIMVASTATIN. [Concomitant]
     Active Substance: SIMVASTATIN
     Route: 065
  11. PRILOSEC [Concomitant]
     Active Substance: OMEPRAZOLE MAGNESIUM
  12. CITALOPRAM [Concomitant]
     Active Substance: CITALOPRAM HYDROBROMIDE
     Route: 065
  13. GABAPENTIN. [Concomitant]
     Active Substance: GABAPENTIN
     Route: 065
  14. PROPARACAINE [Concomitant]
     Active Substance: PROPARACAINE

REACTIONS (12)
  - Death [Fatal]
  - Maculopathy [Unknown]
  - Retinal degeneration [Unknown]
  - Peripheral ischaemia [Unknown]
  - Corneal dystrophy [Unknown]
  - Retinal haemorrhage [Unknown]
  - Optic disc haemorrhage [Unknown]
  - Off label use [Unknown]
  - Posterior capsule opacification [Unknown]
  - Vitreous detachment [Unknown]
  - Retinal scar [Unknown]
  - Macular ischaemia [Unknown]
